FAERS Safety Report 21117688 (Version 2)
Quarter: 2023Q1

REPORT INFORMATION
  Report Type: Report from Study
  Country: US (occurrence: US)
  Receive Date: 20220722
  Receipt Date: 20230317
  Transmission Date: 20230418
  Serious: Yes (Other)
  Sender: FDA-Public Use
  Company Number: US-NOVARTISPH-NVSC2022US162259

PATIENT
  Sex: Male

DRUGS (1)
  1. ENTRESTO [Suspect]
     Active Substance: SACUBITRIL\VALSARTAN
     Indication: Product used for unknown indication
     Dosage: 97 MG, BID (97-103)
     Route: 048
     Dates: start: 20220513

REACTIONS (4)
  - Cardiac failure congestive [Unknown]
  - Fluid retention [Unknown]
  - Blister [Unknown]
  - Swelling [Unknown]
